FAERS Safety Report 24419267 (Version 2)
Quarter: 2024Q4

REPORT INFORMATION
  Report Type: Report from Study
  Country: US (occurrence: US)
  Receive Date: 20241009
  Receipt Date: 20241018
  Transmission Date: 20250115
  Serious: No
  Sender: ROCHE
  Company Number: US-ROCHE-3461589

PATIENT
  Age: 52 Year
  Sex: Female

DRUGS (7)
  1. CATHFLO ACTIVASE [Suspect]
     Active Substance: ALTEPLASE
     Indication: Breast cancer female
     Dosage: ONE TIME ORDER; REFILL ONCE,?DATE OF SERVICE: 06/NOV/2023
     Route: 065
  2. CRESTOR [Concomitant]
     Active Substance: ROSUVASTATIN CALCIUM
  3. PREDNISONE [Concomitant]
     Active Substance: PREDNISONE
  4. MELOXICAM [Concomitant]
     Active Substance: MELOXICAM
  5. NARCO [Concomitant]
  6. SYNTHROID [Concomitant]
     Active Substance: LEVOTHYROXINE SODIUM
  7. OMEPRAZOLE [Concomitant]
     Active Substance: OMEPRAZOLE

REACTIONS (2)
  - No adverse event [Unknown]
  - Off label use [Unknown]
